FAERS Safety Report 10038740 (Version 1)
Quarter: 2014Q1

REPORT INFORMATION
  Report Type: Spontaneous
  Country: US (occurrence: US)
  Receive Date: 20140326
  Receipt Date: 20140326
  Transmission Date: 20141002
  Serious: Yes (Other)
  Sender: FDA-Public Use
  Company Number: US-GE HEALTHCARE MEDICAL DIAGNOSTICS-OPTN-PR-1403S-0006

PATIENT
  Age: 54 Year
  Sex: Female
  Weight: 54.93 kg

DRUGS (4)
  1. OPTISON [Suspect]
     Indication: HYPERTENSION
     Route: 042
     Dates: start: 20140312, end: 20140312
  2. OPTISON [Suspect]
     Indication: CHEST PAIN
  3. OPTISON [Suspect]
     Indication: BLOOD CALCIUM INCREASED
  4. OPTISON [Suspect]
     Indication: DIAGNOSTIC PROCEDURE

REACTIONS (4)
  - Unresponsive to stimuli [Recovered/Resolved]
  - Heart rate decreased [Recovered/Resolved]
  - Nausea [Recovered/Resolved]
  - Restlessness [Recovered/Resolved]
